FAERS Safety Report 21086260 (Version 1)
Quarter: 2022Q3

REPORT INFORMATION
  Report Type: Spontaneous
  Country: NZ (occurrence: NZ)
  Receive Date: 20220715
  Receipt Date: 20220715
  Transmission Date: 20221027
  Serious: Yes (Hospitalization, Other)
  Sender: FDA-Public Use
  Company Number: NZ-ALKEM LABORATORIES LIMITED-NZ-ALKEM-2022-07340

PATIENT
  Age: 37 Year
  Sex: Male

DRUGS (1)
  1. AZATHIOPRINE [Suspect]
     Active Substance: AZATHIOPRINE
     Indication: Colitis ulcerative
     Dosage: 200 MILLIGRAM, QD (ONCE A DAY)
     Route: 065

REACTIONS (7)
  - Myelosuppression [Recovered/Resolved]
  - Stomatitis [Unknown]
  - Gingivitis [Unknown]
  - Oral herpes [Unknown]
  - Oral candidiasis [Unknown]
  - Tooth abscess [Unknown]
  - Subcutaneous abscess [Unknown]
